FAERS Safety Report 21690886 (Version 1)
Quarter: 2022Q4

REPORT INFORMATION
  Report Type: Spontaneous
  Country: JP (occurrence: JP)
  Receive Date: 20221207
  Receipt Date: 20221207
  Transmission Date: 20230113
  Serious: Yes (Hospitalization, Other)
  Sender: FDA-Public Use
  Company Number: JP-TEVA-2022-JP-2833247

PATIENT
  Age: 3 Year
  Sex: Male

DRUGS (13)
  1. PREDNISOLONE [Suspect]
     Active Substance: PREDNISOLONE
     Indication: Haemophagocytic lymphohistiocytosis
     Route: 065
  2. VORICONAZOLE [Suspect]
     Active Substance: VORICONAZOLE
     Indication: Candida infection
     Route: 065
  3. VORICONAZOLE [Suspect]
     Active Substance: VORICONAZOLE
     Indication: Abscess fungal
  4. CYCLOSPORINE [Suspect]
     Active Substance: CYCLOSPORINE
     Indication: Haemophagocytic lymphohistiocytosis
     Route: 065
  5. AMPHOTERICIN B [Suspect]
     Active Substance: AMPHOTERICIN B
     Indication: Candida infection
     Route: 065
  6. AMPHOTERICIN B [Suspect]
     Active Substance: AMPHOTERICIN B
     Indication: Abscess fungal
  7. CASPOFUNGIN [Suspect]
     Active Substance: CASPOFUNGIN
     Indication: Candida infection
     Route: 065
  8. CASPOFUNGIN [Suspect]
     Active Substance: CASPOFUNGIN
     Indication: Abscess fungal
  9. MICAFUNGIN [Suspect]
     Active Substance: MICAFUNGIN
     Indication: Febrile neutropenia
     Route: 065
  10. CYCLOPHOSPHAMIDE [Suspect]
     Active Substance: CYCLOPHOSPHAMIDE
     Indication: Acute lymphocytic leukaemia
     Route: 065
  11. CYTARABINE [Suspect]
     Active Substance: CYTARABINE
     Indication: Acute lymphocytic leukaemia
     Route: 065
  12. MERCAPTOPURINE [Suspect]
     Active Substance: MERCAPTOPURINE
     Indication: Acute lymphocytic leukaemia
     Route: 065
  13. DEXAMETHASONE [Suspect]
     Active Substance: DEXAMETHASONE
     Indication: Haemophagocytic lymphohistiocytosis
     Route: 065

REACTIONS (12)
  - Febrile neutropenia [Unknown]
  - Mucosal inflammation [Unknown]
  - Bacterial sepsis [Unknown]
  - Bacillus infection [Unknown]
  - Haemophagocytic lymphohistiocytosis [Unknown]
  - Candida infection [Unknown]
  - Abscess fungal [Unknown]
  - Systemic candida [Unknown]
  - Endocarditis [Recovered/Resolved]
  - Cerebral infarction [Unknown]
  - Cerebrovascular accident [Recovered/Resolved]
  - Drug ineffective [Unknown]
